FAERS Safety Report 8793739 (Version 1)
Quarter: 2012Q4

REPORT INFORMATION
  Report Type: 
  Country: US (occurrence: US)
  Receive Date: 20120918
  Receipt Date: 20120918
  Transmission Date: 20130627
  Serious: Yes (Life-Threatening, Other)
  Sender: FDA-Public Use
  Company Number: US-CELGENEUS-163-21880-12091552

PATIENT
  Age: 53 Year
  Sex: Male
  Weight: 77.63 kg

DRUGS (3)
  1. REVLIMID [Suspect]
     Indication: MULTIPLE MYELOMA
     Dosage: 25 Milligram
     Route: 048
     Dates: start: 20120531, end: 20120619
  2. TRAMADOL [Concomitant]
     Indication: BACK PAIN
     Dosage: 50 Milligram
     Route: 048
  3. PANADOL [Concomitant]
     Indication: BACK PAIN
     Dosage: 500 Milligram
     Route: 048

REACTIONS (3)
  - Dyspnoea [Recovered/Resolved]
  - Dermatitis bullous [Recovered/Resolved]
  - Oedema peripheral [Recovered/Resolved]
